FAERS Safety Report 12812373 (Version 3)
Quarter: 2016Q4

REPORT INFORMATION
  Report Type: Report from Study
  Country: None (occurrence: US)
  Receive Date: 20161005
  Receipt Date: 20161121
  Transmission Date: 20170207
  Serious: Yes (Hospitalization, Other)
  Sender: FDA-Public Use
  Company Number: US-ABBVIE-16K-163-1736477-00

PATIENT
  Age: 54 Year
  Sex: Female

DRUGS (2)
  1. HUMIRA [Suspect]
     Active Substance: ADALIMUMAB
     Indication: RHEUMATOID ARTHRITIS
     Route: 058
     Dates: start: 20160809, end: 2016
  2. HUMIRA [Suspect]
     Active Substance: ADALIMUMAB
     Route: 058
     Dates: start: 2016

REACTIONS (24)
  - Gait disturbance [Unknown]
  - Increased tendency to bruise [Unknown]
  - Swelling face [Not Recovered/Not Resolved]
  - Rash [Not Recovered/Not Resolved]
  - Furuncle [Recovering/Resolving]
  - Chest pain [Recovering/Resolving]
  - Activities of daily living impaired [Unknown]
  - Pollakiuria [Unknown]
  - Nasopharyngitis [Unknown]
  - Cough [Unknown]
  - Rheumatoid arthritis [Unknown]
  - Dyspnoea [Unknown]
  - Breast swelling [Not Recovered/Not Resolved]
  - Pain in extremity [Unknown]
  - Oedema peripheral [Not Recovered/Not Resolved]
  - Intervertebral disc protrusion [Not Recovered/Not Resolved]
  - Injection site extravasation [Unknown]
  - Headache [Unknown]
  - Discomfort [Unknown]
  - Crohn^s disease [Unknown]
  - Urinary tract infection [Not Recovered/Not Resolved]
  - Anxiety [Not Recovered/Not Resolved]
  - Epistaxis [Recovering/Resolving]
  - Musculoskeletal stiffness [Unknown]

NARRATIVE: CASE EVENT DATE: 2016
